FAERS Safety Report 9063643 (Version 2)
Quarter: 2013Q2

REPORT INFORMATION
  Report Type: Report from Study
  Country: US (occurrence: US)
  Receive Date: 20130213
  Receipt Date: 20130521
  Transmission Date: 20140414
  Serious: Yes (Other)
  Sender: FDA-Public Use
  Company Number: US-GENZYME-LEUK-1000331

PATIENT
  Age: 46 Year
  Sex: Female
  Weight: 84.5 kg

DRUGS (4)
  1. LEUKINE [Suspect]
     Indication: MALIGNANT MELANOMA
     Dosage: 250 MCG, QD ON DAYS 1-14 (INDUCTION THERAPY) CYCLE 1
     Route: 058
     Dates: start: 20110721, end: 20110803
  2. LEUKINE [Suspect]
     Dosage: UNK
     Route: 058
     Dates: end: 20110922
  3. IPILIMUMAB [Suspect]
     Indication: MALIGNANT MELANOMA
     Dosage: 10 MG/KG IV OVER 90 MIN ON DAY 1 (INDUCTION THERAPY)
     Route: 042
     Dates: start: 20110721, end: 20110721
  4. IPILIMUMAB [Suspect]
     Dosage: UNK
     Route: 042
     Dates: end: 20110922

REACTIONS (3)
  - Malignant neoplasm progression [Unknown]
  - Decreased appetite [Recovered/Resolved]
  - Vomiting [Recovered/Resolved]
